FAERS Safety Report 23692059 (Version 1)
Quarter: 2024Q1

REPORT INFORMATION
  Report Type: Spontaneous
  Country: US (occurrence: None)
  Receive Date: 20240329
  Receipt Date: 20240329
  Transmission Date: 20240410
  Serious: No
  Sender: FDA-Public Use
  Company Number: None

PATIENT
  Age: 81 Year
  Sex: 0
  Weight: 78.75 kg

DRUGS (6)
  1. REBLOZYL [Suspect]
     Active Substance: LUSPATERCEPT-AAMT
     Indication: Myelodysplastic syndrome
     Dates: start: 20240222, end: 20240314
  2. REBLOZYL [Suspect]
     Active Substance: LUSPATERCEPT-AAMT
     Indication: Anaemia
  3. ASPIRIN [Concomitant]
     Active Substance: ASPIRIN
  4. XARELTO [Concomitant]
     Active Substance: RIVAROXABAN
  5. TYLENOL [Concomitant]
     Active Substance: ACETAMINOPHEN
  6. METOPROLOL [Concomitant]
     Active Substance: METOPROLOL

REACTIONS (23)
  - Fatigue [None]
  - Dyspnoea [None]
  - General symptom [None]
  - Pain in extremity [None]
  - Gait disturbance [None]
  - Asthenia [None]
  - Dizziness [None]
  - Pain [None]
  - Muscular weakness [None]
  - Musculoskeletal stiffness [None]
  - Dysarthria [None]
  - Fatigue [None]
  - Aphasia [None]
  - Decreased appetite [None]
  - Balance disorder [None]
  - Feeling abnormal [None]
  - Somnolence [None]
  - Confusional state [None]
  - Dyspnoea [None]
  - Head discomfort [None]
  - Discomfort [None]
  - Fear of falling [None]
  - Dysstasia [None]

NARRATIVE: CASE EVENT DATE: 20240301
